FAERS Safety Report 15004518 (Version 1)
Quarter: 2018Q2

REPORT INFORMATION
  Report Type: Spontaneous
  Country: US (occurrence: US)
  Receive Date: 20180524
  Receipt Date: 20180524
  Transmission Date: 20180711
  Serious: Yes (Disabling)
  Sender: FDA-Public Use
  Company Number: None

PATIENT
  Age: 30 Year
  Sex: Female
  Weight: 77.4 kg

DRUGS (2)
  1. RAINBOW LITE PRENATAL VITAMIN AND DHA SUPPLEMENT [Concomitant]
  2. MIRENA [Suspect]
     Active Substance: LEVONORGESTREL
     Indication: CONTRACEPTION
     Route: 067
     Dates: start: 20180323, end: 20180523

REACTIONS (4)
  - Embedded device [None]
  - Menorrhagia [None]
  - Dysmenorrhoea [None]
  - Ovarian cyst [None]

NARRATIVE: CASE EVENT DATE: 20180522
